FAERS Safety Report 8170717-4 (Version None)
Quarter: 2012Q1

REPORT INFORMATION
  Report Type: 
  Country: None (occurrence: None)
  Receive Date: 20120104
  Receipt Date: 20111025
  Transmission Date: 20120608
  Serious: No
  Sender: FDA-Public Use
  Company Number: 2011HGS-002687

PATIENT
  Age: 54 Year
  Sex: Female

DRUGS (3)
  1. EFFEXOR (VENLAFAXINE HYDROCHLORIDE) (VENLAFAXINE HYDROCHLORIDE) [Concomitant]
  2. BENLYSTA [Suspect]
     Indication: SYSTEMIC LUPUS ERYTHEMATOSUS
     Dosage: 10 MG/KG, 1 IN 28 D, INTRAVENOUS
     Route: 042
     Dates: start: 20110728
  3. LUNESTA (ESZOPICLONE) (ESZOPICLONE) [Concomitant]

REACTIONS (4)
  - INSOMNIA [None]
  - DIARRHOEA [None]
  - AGITATION [None]
  - NAUSEA [None]
